FAERS Safety Report 6822574-3 (Version None)
Quarter: 2010Q3

REPORT INFORMATION
  Report Type: 
  Country: None (occurrence: None)
  Receive Date: 20100702
  Receipt Date: 20100622
  Transmission Date: 20110219
  Serious: Yes (Other)
  Sender: FDA-Public Use
  Company Number: 7008808

PATIENT
  Age: 62 Year
  Sex: Male

DRUGS (2)
  1. REBIF [Suspect]
     Indication: MULTIPLE SCLEROSIS
     Dosage: 44 MCG, 3 IN 1 WK, SUBCUTANEOUS
     Route: 058
     Dates: start: 20080125
  2. STEROIDS (CORTICOSTEROIDS) [Suspect]
     Indication: MULTIPLE SCLEROSIS RELAPSE
     Dosage: INTRAVENOUS (NOT OTHERWISE SPECIFIED)
     Route: 042
     Dates: start: 20100101, end: 20100101

REACTIONS (4)
  - BALANCE DISORDER [None]
  - DIABETES MELLITUS [None]
  - MULTIPLE SCLEROSIS RELAPSE [None]
  - WEIGHT INCREASED [None]
